APPROVED DRUG PRODUCT: RANITIDINE HYDROCHLORIDE
Active Ingredient: RANITIDINE HYDROCHLORIDE
Strength: EQ 75MG BASE
Dosage Form/Route: TABLET;ORAL
Application: A075094 | Product #001
Applicant: CONTRACT PHARMACAL CORP
Approved: Jun 21, 1999 | RLD: No | RS: No | Type: DISCN